FAERS Safety Report 8557860 (Version 4)
Quarter: 2012Q4

REPORT INFORMATION
  Report Type: 
  Country: CA (occurrence: CA)
  Receive Date: 20120511
  Receipt Date: 20120831
  Transmission Date: 20130627
  Serious: Yes (Hospitalization, Other)
  Sender: FDA-Public Use
  Company Number: PHHY2012CA039556

PATIENT
  Age: 76 Year
  Weight: 108.4 kg

DRUGS (2)
  1. ACLASTA [Suspect]
     Dosage: UNK UKN, UNK
     Route: 042
     Dates: start: 20100326
  2. VITAMIN D [Concomitant]
     Indication: OSTEOPOROSIS
     Dosage: 400 UKN, TID

REACTIONS (8)
  - Fall [Unknown]
  - Upper limb fracture [Unknown]
  - Humerus fracture [Unknown]
  - Gastrointestinal disorder [Unknown]
  - Pain [Unknown]
  - Bone density decreased [Unknown]
  - Drug ineffective [Unknown]
  - Treatment failure [Unknown]
